FAERS Safety Report 13584487 (Version 4)
Quarter: 2017Q4

REPORT INFORMATION
  Report Type: Report from Study
  Country: CO (occurrence: CO)
  Receive Date: 20170526
  Receipt Date: 20171113
  Transmission Date: 20180320
  Serious: Yes (Hospitalization, Other)
  Sender: FDA-Public Use
  Company Number: PHHY2017CO074443

PATIENT
  Sex: Female
  Weight: 50 kg

DRUGS (1)
  1. EXJADE [Suspect]
     Active Substance: DEFERASIROX
     Indication: SICKLE CELL ANAEMIA
     Dosage: 500 MG, QD
     Route: 048
     Dates: start: 20160915, end: 20161015

REACTIONS (5)
  - Cachexia [Not Recovered/Not Resolved]
  - Depressed mood [Unknown]
  - Blood iron increased [Unknown]
  - Maternal exposure during pregnancy [Unknown]
  - Pallor [Not Recovered/Not Resolved]
